FAERS Safety Report 25903435 (Version 4)
Quarter: 2025Q4

REPORT INFORMATION
  Report Type: Report from Study
  Country: CH (occurrence: CH)
  Receive Date: 20251009
  Receipt Date: 20251027
  Transmission Date: 20260117
  Serious: Yes (Hospitalization, Other)
  Sender: ABBVIE
  Company Number: CH-ABBVIE-6490960

PATIENT
  Age: 72 Year
  Sex: Female

DRUGS (10)
  1. CARBIDOPA\LEVODOPA [Suspect]
     Active Substance: CARBIDOPA\LEVODOPA
     Indication: Parkinson^s disease
     Dosage: CURRENT DOSING: MD 11 ML, CRD 2.5 ML/H, ED 2 ML LAST ADMIN DATE: 2025
     Route: 050
     Dates: start: 20250929
  2. CARBIDOPA\LEVODOPA [Suspect]
     Active Substance: CARBIDOPA\LEVODOPA
     Dosage: FIRST ADMIN DATE: 2025 ; MD 11ML, CRD 3.3 ML/H, ED 2ML, LAST ADMIN DATE: 2025
     Route: 050
  3. CARBIDOPA\LEVODOPA [Suspect]
     Active Substance: CARBIDOPA\LEVODOPA
     Dosage: FIRST ADMIN DATE: 2025 ;MD 11ML, CRD 2.5ML/H, ED 2ML DAY, LAST ADMIN DATE: 2025
     Route: 050
  4. CARBIDOPA\LEVODOPA [Suspect]
     Active Substance: CARBIDOPA\LEVODOPA
     Dosage: FIRST ADMIN DATE: 2025-10, MD 11 ML, CRD 3.5 ML/H, ED 2ML, LAST ADMIN DATE: 2025-10
     Route: 050
  5. CARBIDOPA\LEVODOPA [Suspect]
     Active Substance: CARBIDOPA\LEVODOPA
     Dosage: MD 11 ML, CRD 3.8 ML/H, ED 2ML, LAST ADMIN DATE: 2025-10
     Route: 050
     Dates: start: 20251007
  6. CARBIDOPA\LEVODOPA [Suspect]
     Active Substance: CARBIDOPA\LEVODOPA
     Dosage: FIRST ADMIN DATE: 2025-10, MD 11 ML, CRD 3.1 ML/H, ED 2ML, LAST ADMIN DATE: 2025-10
     Route: 050
  7. CARBIDOPA\LEVODOPA [Suspect]
     Active Substance: CARBIDOPA\LEVODOPA
     Dosage: MD 11 ML, CRD 3.6 ML/H , ED 3ML
     Route: 050
     Dates: start: 20251008, end: 20251008
  8. CARBIDOPA\LEVODOPA [Suspect]
     Active Substance: CARBIDOPA\LEVODOPA
     Dosage: MD 11 ML, CRD 3.7 ML/H , ED 3 ML?LAST ADMIN DATE: 2025-10
     Route: 050
     Dates: start: 20251009
  9. CARBIDOPA\LEVODOPA [Suspect]
     Active Substance: CARBIDOPA\LEVODOPA
     Dosage: FIRST ADMIN DATE: 2025-10 ; MD 11ML, CRD 3.3 ML/H, ED 2ML, LAST ADMIN DATE: 2025-10
     Route: 050
  10. CARBIDOPA\LEVODOPA [Suspect]
     Active Substance: CARBIDOPA\LEVODOPA
     Dosage: MD 10ML, CRD 3.5ML/H, ED 2ML?FIRST ADMIN DATE: 2025-10
     Route: 050

REACTIONS (15)
  - Tremor [Recovering/Resolving]
  - On and off phenomenon [Not Recovered/Not Resolved]
  - Fatigue [Unknown]
  - On and off phenomenon [Unknown]
  - Stoma site pain [Not Recovered/Not Resolved]
  - Peritonitis [Unknown]
  - Freezing phenomenon [Unknown]
  - Stoma site discharge [Unknown]
  - Dyskinesia [Recovering/Resolving]
  - Tachycardia [Unknown]
  - Underdose [Unknown]
  - Oxygen saturation decreased [Recovering/Resolving]
  - Hypersomnia [Unknown]
  - Flatulence [Unknown]
  - Overdose [Recovered/Resolved]

NARRATIVE: CASE EVENT DATE: 20250101
